FAERS Safety Report 23608874 (Version 1)
Quarter: 2024Q1

REPORT INFORMATION
  Report Type: Spontaneous
  Country: DE (occurrence: DE)
  Receive Date: 20240308
  Receipt Date: 20240308
  Transmission Date: 20240409
  Serious: Yes (Death, Hospitalization, Other)
  Sender: FDA-Public Use
  Company Number: None

PATIENT
  Age: 61 Year
  Sex: Male
  Weight: 80 kg

DRUGS (12)
  1. CARBOPLATIN [Suspect]
     Active Substance: CARBOPLATIN
     Indication: Non-small cell lung cancer
     Dosage: 679.20 MILLIGRAM, CYCLICAL  (FIRST AND ONLY DOSE)
     Route: 042
     Dates: start: 20190115, end: 20190115
  2. PEMETREXED DISODIUM [Suspect]
     Active Substance: PEMETREXED DISODIUM
     Indication: Non-small cell lung cancer
     Dosage: 995 MILLIGRAM, CYCLICAL (FIRST AND ONLY DOSE)
     Route: 042
     Dates: start: 20190115, end: 20190115
  3. PEMBROLIZUMAB [Suspect]
     Active Substance: PEMBROLIZUMAB
     Indication: Non-small cell lung cancer
     Dosage: 200 MILLIGRAM, CYCLICAL (FIRST AND ONLY DOSE)
     Route: 042
     Dates: start: 20190115, end: 20190115
  4. ABSTRAL [Concomitant]
     Active Substance: FENTANYL CITRATE
     Indication: Product used for unknown indication
     Dosage: 100 MICROGRAM ORAL ON DEMAND
     Route: 048
     Dates: start: 2018
  5. METFORMIN HYDROCHLORIDE [Concomitant]
     Active Substance: METFORMIN HYDROCHLORIDE
     Indication: Product used for unknown indication
     Dosage: 1000 MILLIGRAM ORAL 2X1 DAILY
     Route: 048
     Dates: start: 2018
  6. Novalgin [Concomitant]
     Indication: Product used for unknown indication
     Dosage: 40 GTT ORAL, 4X DAILY
     Route: 048
     Dates: start: 2018
  7. Ossofortin [Concomitant]
     Indication: Product used for unknown indication
     Dosage: 1 DF, QD
     Route: 048
     Dates: start: 2018
  8. PALEXIA [Concomitant]
     Active Substance: TAPENTADOL HYDROCHLORIDE
     Indication: Product used for unknown indication
     Dosage: 300 MILLIGRAM (150 MG 2 X1) DAILY
     Route: 048
     Dates: start: 2018
  9. PANTOPRAZOLE SODIUM [Concomitant]
     Active Substance: PANTOPRAZOLE SODIUM
     Indication: Product used for unknown indication
     Dosage: 80 MILLIGRAM (2X1) DAILY
     Route: 048
     Dates: start: 2018
  10. PREGABALIN [Concomitant]
     Active Substance: PREGABALIN
     Indication: Product used for unknown indication
     Dosage: 150 MG ORAL (75 MG 2X1) DAILY
     Route: 048
     Dates: start: 2018
  11. RAMIPRIL [Concomitant]
     Active Substance: RAMIPRIL
     Indication: Product used for unknown indication
     Dosage: 10 MILLIGRAM (5 MG 2 X 1), DAILY
     Route: 048
     Dates: start: 2018
  12. RAMIPRIL [Concomitant]
     Active Substance: RAMIPRIL
     Indication: Product used for unknown indication
     Dosage: 1/2 TABLET ORAL, 2X1 DAILY
     Route: 048
     Dates: start: 2018

REACTIONS (1)
  - Neutropenic sepsis [Fatal]

NARRATIVE: CASE EVENT DATE: 20190121
